FAERS Safety Report 7959784-8 (Version None)
Quarter: 2011Q4

REPORT INFORMATION
  Report Type: 
  Country: None (occurrence: None)
  Receive Date: 20111206
  Receipt Date: 20111128
  Transmission Date: 20120403
  Serious: Yes (Other)
  Sender: FDA-Public Use
  Company Number: JP-JNJFOC-20111100008

PATIENT
  Age: 52 Year
  Sex: Female

DRUGS (10)
  1. RISPERDAL [Suspect]
     Indication: PRODUCT USED FOR UNKNOWN INDICATION
     Route: 048
  2. ALL OTHER THERAPEUTIC PRODUCTS [Suspect]
     Indication: PRODUCT USED FOR UNKNOWN INDICATION
     Route: 065
  3. LANSOPRAZOLE [Concomitant]
     Route: 048
  4. LYRICA [Concomitant]
     Route: 048
  5. NORVASC [Concomitant]
     Route: 048
  6. RISPERDAL [Suspect]
     Route: 048
  7. NEORAL [Concomitant]
     Route: 048
  8. LASIX [Concomitant]
     Route: 048
  9. LENDORMIN [Concomitant]
     Route: 048
  10. AN UNKNOWN MEDICATION [Concomitant]
     Dosage: GRANULATED POWDER
     Route: 048

REACTIONS (2)
  - LOSS OF CONTROL OF LEGS [None]
  - DYSKINESIA [None]
